FAERS Safety Report 24585851 (Version 2)
Quarter: 2025Q3

REPORT INFORMATION
  Report Type: Report from Study
  Country: CA (occurrence: CA)
  Receive Date: 20241106
  Receipt Date: 20250803
  Transmission Date: 20251021
  Serious: Yes (Hospitalization, Other)
  Sender: ALEXION PHARMACEUTICALS
  Company Number: CA-AstraZeneca-CH-00737909A

PATIENT
  Sex: Male

DRUGS (4)
  1. FASENRA [Suspect]
     Active Substance: BENRALIZUMAB
     Indication: Asthma
  2. BRICANYL [Concomitant]
     Active Substance: TERBUTALINE SULFATE
     Route: 065
  3. Gravis [Concomitant]
     Route: 065
  4. SYMBICORT [Concomitant]
     Active Substance: BUDESONIDE\FORMOTEROL FUMARATE DIHYDRATE
     Route: 065

REACTIONS (4)
  - Myasthenia gravis [Unknown]
  - Cardiac disorder [Unknown]
  - Dyspnoea [Unknown]
  - Diabetes mellitus [Unknown]
